FAERS Safety Report 23876777 (Version 2)
Quarter: 2024Q2

REPORT INFORMATION
  Report Type: Spontaneous
  Country: FR (occurrence: FR)
  Receive Date: 20240521
  Receipt Date: 20240528
  Transmission Date: 20240716
  Serious: Yes (Death, Life-Threatening, Hospitalization, Other)
  Sender: FDA-Public Use
  Company Number: FR-ALKEM LABORATORIES LIMITED-FR-ALKEM-2024-09817

PATIENT
  Age: 62 Year
  Sex: Female

DRUGS (4)
  1. MYCOPHENOLATE MOFETIL [Suspect]
     Active Substance: MYCOPHENOLATE MOFETIL
     Indication: Immunosuppressant drug therapy
     Dosage: UNK
     Route: 065
  2. TACROLIMUS [Suspect]
     Active Substance: TACROLIMUS
     Indication: Immunosuppressant drug therapy
     Dosage: UNK
     Route: 065
  3. PREDNISONE [Suspect]
     Active Substance: PREDNISONE
     Indication: Immunosuppressant drug therapy
     Dosage: UNK
     Route: 065
  4. PIPERACILLIN SODIUM\TAZOBACTAM SODIUM [Concomitant]
     Active Substance: PIPERACILLIN SODIUM\TAZOBACTAM SODIUM
     Indication: Antibiotic prophylaxis
     Dosage: UNK
     Route: 065

REACTIONS (22)
  - Lung disorder [Fatal]
  - Low cardiac output syndrome [Fatal]
  - Coagulopathy [Fatal]
  - Cardiorenal syndrome [Fatal]
  - Hypovolaemia [Fatal]
  - Multiple organ dysfunction syndrome [Fatal]
  - Respiratory acidosis [Fatal]
  - Systemic inflammatory response syndrome [Fatal]
  - Pulmonary oedema [Fatal]
  - Hypoxia [Fatal]
  - Metabolic disorder [Fatal]
  - Pulmonary oedema [Fatal]
  - Renal failure [Fatal]
  - Acute kidney injury [Fatal]
  - Respiratory failure [Fatal]
  - Hypercapnia [Fatal]
  - Toxoplasmosis [Fatal]
  - Aspergillus infection [Fatal]
  - Acute respiratory distress syndrome [Fatal]
  - Sepsis [Fatal]
  - Aspergillus infection [Fatal]
  - Cytomegalovirus infection reactivation [Fatal]
